FAERS Safety Report 5621669-X (Version None)
Quarter: 2008Q1

REPORT INFORMATION
  Report Type: 
  Country: None (occurrence: None)
  Receive Date: 20080131
  Receipt Date: 20080116
  Transmission Date: 20080703
  Serious: Yes (Other)
  Sender: FDA-Public Use
  Company Number: WAES 0801CAN00153

PATIENT
  Age: 57 Year
  Sex: Female

DRUGS (2)
  1. ZETIA [Suspect]
     Dosage: 10 MG/DAILY PO
     Route: 048
  2. TAB PREXIGE (LUMIRACOXIB) [Suspect]
     Dosage: PO
     Route: 048

REACTIONS (5)
  - CHILLS [None]
  - NAUSEA [None]
  - PHARYNGOLARYNGEAL PAIN [None]
  - PYREXIA [None]
  - RASH [None]
